FAERS Safety Report 7080579-4 (Version None)
Quarter: 2010Q4

REPORT INFORMATION
  Report Type: 
  Country: None (occurrence: None)
  Receive Date: 20101025
  Receipt Date: 20101008
  Transmission Date: 20110411
  Serious: Yes (Hospitalization)
  Sender: FDA-Public Use
  Company Number: 015897

PATIENT
  Sex: Female
  Weight: 62.8 kg

DRUGS (1)
  1. CIMZIA [Suspect]
     Indication: CROHN'S DISEASE
     Dosage: 400 MG 1X/MONTH SUBUTANEOUS
     Route: 058
     Dates: start: 20090601

REACTIONS (4)
  - CONSTIPATION [None]
  - HEADACHE [None]
  - PAIN [None]
  - VOMITING [None]
